FAERS Safety Report 17276609 (Version 1)
Quarter: 2020Q1

REPORT INFORMATION
  Report Type: Spontaneous
  Country: CY (occurrence: CY)
  Receive Date: 20200116
  Receipt Date: 20200116
  Transmission Date: 20200409
  Serious: Yes (Other)
  Sender: FDA-Public Use
  Company Number: NVSC2020CY008773

PATIENT
  Age: 41 Year
  Sex: Female
  Weight: 51 kg

DRUGS (7)
  1. DEFERIPRONE [Suspect]
     Active Substance: DEFERIPRONE
     Indication: CHELATION THERAPY
     Dosage: 75 MG/KG, QD (2 MONTHS)
     Route: 065
  2. DEFERIPRONE [Suspect]
     Active Substance: DEFERIPRONE
     Dosage: 80 MG/KG, QD (15 MONTHS)
     Route: 065
  3. DEFERIPRONE [Suspect]
     Active Substance: DEFERIPRONE
     Dosage: 95 MG/KG, QD (7 MONTHS)
     Route: 065
  4. DEFEROXAMINE [Suspect]
     Active Substance: DEFEROXAMINE MESYLATE
     Dosage: 45 MG/KG (4 D ? 18 H-I (9),USING AN ELASTOMERIC PUMP
     Route: 065
  5. DEFEROXAMINE [Suspect]
     Active Substance: DEFEROXAMINE MESYLATE
     Dosage: 55 MG/KG (2 D ? 15 H-I (5) USING AN ELASTOMERIC PUMP
     Route: 065
  6. DEFEROXAMINE [Suspect]
     Active Substance: DEFEROXAMINE MESYLATE
     Indication: CHELATION THERAPY
     Dosage: 60 MG/KG (5 D ? 18 H-I (8),
     Route: 065
  7. DEFERIPRONE [Suspect]
     Active Substance: DEFERIPRONE
     Dosage: 95 MG/KG, QD (5 MONTHS)
     Route: 065

REACTIONS (1)
  - Cardiac failure congestive [Unknown]
